FAERS Safety Report 8381146-2 (Version None)
Quarter: 2012Q2

REPORT INFORMATION
  Report Type: 
  Country: None (occurrence: None)
  Receive Date: 20120523
  Receipt Date: 20120518
  Transmission Date: 20120825
  Serious: Yes (Other)
  Sender: FDA-Public Use
  Company Number: PHHY2012CA010506

PATIENT
  Sex: Female

DRUGS (2)
  1. SANDOSTATIN LAR [Suspect]
     Dosage: 10 MG, ONCE IN EVERY 4 WEEKS
     Route: 030
  2. SANDOSTATIN LAR [Suspect]
     Indication: ANGIODYSPLASIA
     Dosage: 10 MG, QMO
     Route: 030
     Dates: start: 20120131

REACTIONS (14)
  - INJECTION SITE PAIN [None]
  - PALPITATIONS [None]
  - FEELING ABNORMAL [None]
  - DYSPNOEA [None]
  - FACIAL PAIN [None]
  - HUNGER [None]
  - PARAESTHESIA [None]
  - CENTRAL NERVOUS SYSTEM LESION [None]
  - SYNCOPE [None]
  - HYPERPHAGIA [None]
  - BLOOD PRESSURE DECREASED [None]
  - VISION BLURRED [None]
  - QUALITY OF LIFE DECREASED [None]
  - HEADACHE [None]
